FAERS Safety Report 7814990-8 (Version None)
Quarter: 2011Q4

REPORT INFORMATION
  Report Type: 
  Country: None (occurrence: None)
  Receive Date: 20111014
  Receipt Date: 20111005
  Transmission Date: 20120403
  Serious: Yes (Other)
  Sender: FDA-Public Use
  Company Number: US-GLAXOSMITHKLINE-A0947566A

PATIENT
  Age: 52 Year
  Sex: Female

DRUGS (4)
  1. SEROQUEL [Concomitant]
  2. PARNATE [Suspect]
     Indication: DEPRESSION
     Dosage: 50MG PER DAY
     Route: 048
     Dates: start: 20040101
  3. PROASIS [Suspect]
     Indication: ENERGY INCREASED
     Dosage: 25MG UNKNOWN
     Route: 065
  4. FOOD [Suspect]

REACTIONS (8)
  - PARAESTHESIA [None]
  - ABDOMINAL DISCOMFORT [None]
  - FEELING HOT [None]
  - DRUG INTERACTION [None]
  - HYPERTENSIVE CRISIS [None]
  - HEADACHE [None]
  - FEELING ABNORMAL [None]
  - FOOD INTERACTION [None]
